FAERS Safety Report 7686036-6 (Version None)
Quarter: 2011Q3

REPORT INFORMATION
  Report Type: 
  Country: None (occurrence: None)
  Receive Date: 20110816
  Receipt Date: 20110805
  Transmission Date: 20111222
  Serious: Yes (Other)
  Sender: FDA-Public Use
  Company Number: PHHY2011US71992

PATIENT
  Sex: Female

DRUGS (1)
  1. METHERGINE [Suspect]
     Indication: UTERINE ATONY
     Dosage: 1 ML, UNK
     Route: 042

REACTIONS (2)
  - SUBARACHNOID HAEMORRHAGE [None]
  - BLOOD PRESSURE INCREASED [None]
